FAERS Safety Report 10466531 (Version 1)
Quarter: 2014Q3

REPORT INFORMATION
  Report Type: Spontaneous
  Country: US (occurrence: None)
  Receive Date: 20140919
  Receipt Date: 20140919
  Transmission Date: 20150326
  Serious: Yes (Hospitalization)
  Sender: FDA-Public Use
  Company Number: None

PATIENT
  Age: 86 Year
  Sex: Male
  Weight: 54.5 kg

DRUGS (13)
  1. FAMOTIDINE. [Concomitant]
     Active Substance: FAMOTIDINE
  2. ATORVASTATIN [Concomitant]
     Active Substance: ATORVASTATIN
  3. ASPIRIN. [Concomitant]
     Active Substance: ASPIRIN
  4. LISINOPRIL. [Concomitant]
     Active Substance: LISINOPRIL
  5. MEMANTINE [Concomitant]
     Active Substance: MEMANTINE
  6. CLOPIDOGREL [Concomitant]
     Active Substance: CLOPIDOGREL BISULFATE
  7. LINZESS [Concomitant]
     Active Substance: LINACLOTIDE
  8. AXONA [Suspect]
     Active Substance: TRICAPRYLIN
     Indication: DEMENTIA ALZHEIMER^S TYPE
     Route: 048
     Dates: start: 2013, end: 201401
  9. METOPROLOL TARTRATE. [Concomitant]
     Active Substance: METOPROLOL TARTRATE
  10. CENTRUM SILVER [Concomitant]
     Active Substance: VITAMINS
  11. LACTULOSE LAC [Concomitant]
  12. LEVOTHYROXINE [Concomitant]
     Active Substance: LEVOTHYROXINE
  13. MAGNESIUM OXIDE. [Concomitant]
     Active Substance: MAGNESIUM OXIDE

REACTIONS (18)
  - Cerebral microangiopathy [None]
  - Urosepsis [None]
  - Vomiting [None]
  - Microangiopathy [None]
  - Pneumonia aspiration [None]
  - Urinary tract infection [None]
  - Cerebrovascular accident [None]
  - Decreased appetite [None]
  - Mental status changes [None]
  - Blood electrolytes abnormal [None]
  - Cystitis [None]
  - Renal failure acute [None]
  - Streptococcus test positive [None]
  - Dementia [None]
  - Lacunar infarction [None]
  - Dehydration [None]
  - Asthenia [None]
  - Fall [None]

NARRATIVE: CASE EVENT DATE: 20140104
